FAERS Safety Report 5366306-7 (Version None)
Quarter: 2007Q2

REPORT INFORMATION
  Report Type: 
  Country: None (occurrence: None)
  Receive Date: 20070619
  Receipt Date: 20070619
  Transmission Date: 20071010
  Serious: No
  Sender: FDA-Public Use
  Company Number: None

PATIENT
  Sex: Male
  Weight: 99.79 kg

DRUGS (2)
  1. ALIMTA [Suspect]
     Dosage: 880 MG
  2. CARBOPLATIN [Suspect]
     Dosage: 575 MG

REACTIONS (6)
  - DRUG HYPERSENSITIVITY [None]
  - DRUG TOXICITY [None]
  - FATIGUE [None]
  - MEDICATION ERROR [None]
  - SCAB [None]
  - TONGUE INJURY [None]
